FAERS Safety Report 25994428 (Version 1)
Quarter: 2025Q4

REPORT INFORMATION
  Report Type: Report from Study
  Country: EU (occurrence: EU)
  Receive Date: 20251104
  Receipt Date: 20251104
  Transmission Date: 20260117
  Serious: Yes (Hospitalization, Other)
  Sender: CELLTRION
  Company Number: None

PATIENT

DRUGS (4)
  1. RITUXIMAB [Suspect]
     Active Substance: RITUXIMAB
     Indication: Mantle cell lymphoma stage IV
     Dosage: 765 MILLIGRAM, MONTHLY
     Route: 042
     Dates: start: 20230605, end: 20250606
  2. CISPLATIN [Suspect]
     Active Substance: CISPLATIN
     Indication: Mantle cell lymphoma stage IV
     Dosage: 204 MILLIGRAM, MONTHLY
     Route: 042
     Dates: start: 20250605, end: 20250605
  3. CYTARABINE [Suspect]
     Active Substance: CYTARABINE
     Indication: Mantle cell lymphoma stage IV
     Dosage: 4.08 MILLIGRAM, MONTHLY
     Route: 042
     Dates: start: 20250605, end: 20250606
  4. ONDANSETRON [Suspect]
     Active Substance: ONDANSETRON
     Indication: Mantle cell lymphoma stage IV
     Dosage: 8 MILLIGRAM, SINGLE
     Route: 042
     Dates: start: 20250605, end: 20250605

REACTIONS (1)
  - Angina unstable [Recovered/Resolved]

NARRATIVE: CASE EVENT DATE: 20250611
